FAERS Safety Report 10012818 (Version 1)
Quarter: 2014Q1

REPORT INFORMATION
  Report Type: Spontaneous
  Country: US (occurrence: US)
  Receive Date: 20140314
  Receipt Date: 20140314
  Transmission Date: 20141002
  Serious: Yes (Other)
  Sender: FDA-Public Use
  Company Number: US-DAIICHI SANKYO INCORPORATION-DSU-2014-100305

PATIENT
  Sex: 0

DRUGS (6)
  1. WELCHOL [Suspect]
     Indication: DIARRHOEA
     Dosage: 625 MG, TID
     Route: 048
     Dates: end: 2013
  2. WELCHOL [Suspect]
     Indication: BILE OUTPUT ABNORMAL
     Dosage: 1250 MG, TID
     Route: 048
     Dates: start: 2013
  3. WELCHOL [Suspect]
     Dosage: UNK
     Route: 048
  4. WARFARIN [Concomitant]
     Indication: PRODUCT USED FOR UNKNOWN INDICATION
     Dosage: UNK
     Dates: end: 201402
  5. ELIQUIS [Concomitant]
     Indication: PRODUCT USED FOR UNKNOWN INDICATION
     Dosage: UNK, BID
  6. MONTELUKAST [Concomitant]
     Indication: ASTHMA
     Dosage: UNK

REACTIONS (5)
  - Lymphoma [Recovered/Resolved]
  - Atrial fibrillation [Not Recovered/Not Resolved]
  - Diarrhoea [Recovered/Resolved]
  - Drug administration error [Not Recovered/Not Resolved]
  - Osteoporosis [Not Recovered/Not Resolved]
